FAERS Safety Report 8870995 (Version 1)
Quarter: 2012Q4

REPORT INFORMATION
  Report Type: 
  Country: US (occurrence: US)
  Receive Date: 20121026
  Receipt Date: 20121026
  Transmission Date: 20130627
  Serious: No
  Sender: FDA-Public Use
  Company Number: US-AMGEN-USASP2012044117

PATIENT
  Age: 44 Year
  Sex: Female
  Weight: 53.52 kg

DRUGS (4)
  1. ENBREL [Suspect]
     Indication: PRODUCT USED FOR UNKNOWN INDICATION
     Dosage: 50 mg, qwk
     Route: 058
  2. METHOTREXATE [Concomitant]
     Dosage: 25 mg, UNK
  3. HUMIRA [Concomitant]
     Dosage: 40 mg, UNK
  4. LOVAZA [Concomitant]
     Dosage: 1 mg, UNK

REACTIONS (3)
  - Pain [Unknown]
  - Pruritus [Unknown]
  - Rash [Unknown]
